FAERS Safety Report 7013547-9 (Version None)
Quarter: 2010Q3

REPORT INFORMATION
  Report Type: 
  Country: None (occurrence: None)
  Receive Date: 20100924
  Receipt Date: 20100915
  Transmission Date: 20110219
  Serious: Yes (Other)
  Sender: FDA-Public Use
  Company Number: PHHY2010AU62586

PATIENT
  Sex: Female

DRUGS (1)
  1. RITALIN [Suspect]
     Indication: NARCOLEPSY
     Dosage: UNK
     Dates: start: 19900101

REACTIONS (1)
  - TYPE 1 DIABETES MELLITUS [None]
